FAERS Safety Report 7018330-6 (Version None)
Quarter: 2010Q3

REPORT INFORMATION
  Report Type: 
  Country: None (occurrence: None)
  Receive Date: 20100924
  Receipt Date: 20100916
  Transmission Date: 20110219
  Serious: Yes (Other)
  Sender: FDA-Public Use
  Company Number: 20108373

PATIENT
  Age: 72 Year
  Sex: Male

DRUGS (1)
  1. LIORESAL [Suspect]
     Indication: MUSCLE SPASTICITY
     Dosage: 75 MCG, DAILY, INTRATHECAL
     Route: 037

REACTIONS (22)
  - CELLULITIS [None]
  - DENTAL CARIES [None]
  - DEVICE RELATED INFECTION [None]
  - DIZZINESS [None]
  - HAEMATOMA [None]
  - INCISION SITE ERYTHEMA [None]
  - INCISION SITE INFECTION [None]
  - INCISION SITE OEDEMA [None]
  - INFECTION [None]
  - INJURY [None]
  - LIP SWELLING [None]
  - LOSS OF CONSCIOUSNESS [None]
  - MALAISE [None]
  - MEDICAL DEVICE COMPLICATION [None]
  - OEDEMA [None]
  - OVERDOSE [None]
  - PYREXIA [None]
  - RASH [None]
  - SEROMA [None]
  - SWELLING FACE [None]
  - TOOTH EXTRACTION [None]
  - WOUND COMPLICATION [None]
